FAERS Safety Report 8908481 (Version 1)
Quarter: 2012Q4

REPORT INFORMATION
  Report Type: 
  Country: US (occurrence: US)
  Receive Date: 20121114
  Receipt Date: 20121114
  Transmission Date: 20130627
  Serious: Yes (Death)
  Sender: FDA-Public Use
  Company Number: US-PFIZER INC-2012282838

PATIENT
  Age: 62 Year
  Sex: Female

DRUGS (1)
  1. INLYTA [Suspect]
     Indication: CANCER
     Dosage: 5 mg, Q12h
     Route: 048
     Dates: start: 20120912, end: 20121110

REACTIONS (2)
  - Disease progression [Fatal]
  - Neoplasm malignant [Fatal]
